FAERS Safety Report 25456418 (Version 1)
Quarter: 2025Q2

REPORT INFORMATION
  Report Type: Spontaneous
  Country: US (occurrence: US)
  Receive Date: 20250619
  Receipt Date: 20250619
  Transmission Date: 20250716
  Serious: No
  Sender: DIFGEN PHARMACEUTICALS LLC
  Company Number: US-Difgen-012021

PATIENT
  Sex: Female

DRUGS (1)
  1. FENTANYL [Suspect]
     Active Substance: FENTANYL
     Indication: Product used for unknown indication
     Route: 062

REACTIONS (5)
  - Product adhesion issue [Unknown]
  - Product quality issue [Unknown]
  - Product substitution issue [Unknown]
  - Application site erythema [Unknown]
  - Application site rash [Unknown]
